FAERS Safety Report 7285323-3 (Version None)
Quarter: 2011Q1

REPORT INFORMATION
  Report Type: 
  Country: None (occurrence: None)
  Receive Date: 20110210
  Receipt Date: 20110128
  Transmission Date: 20110831
  Serious: Yes (Hospitalization)
  Sender: FDA-Public Use
  Company Number: US-ROCHE-755977

PATIENT
  Age: 57 Year
  Sex: Female
  Weight: 42.2 kg

DRUGS (4)
  1. BLINDED ERLOTINIB [Suspect]
     Indication: NON-SMALL CELL LUNG CANCER
     Dosage: FREQUENCY:QD, DOSE BLINDED
     Route: 048
     Dates: start: 20101203, end: 20110113
  2. BEVACIZUMAB [Suspect]
     Indication: NON-SMALL CELL LUNG CANCER
     Dosage: FREQUENCY: OVER 30-90 MIN ON DAY 1
     Route: 042
     Dates: start: 20101203, end: 20101223
  3. PACLITAXEL [Suspect]
     Indication: NON-SMALL CELL LUNG CANCER
     Dosage: FREQUENCY: OVER 3 HOURS ON DAY 1
     Route: 042
     Dates: start: 20101203, end: 20110114
  4. CARBOPLATIN [Suspect]
     Indication: NON-SMALL CELL LUNG CANCER
     Dosage: DOSE: 6, FREQUENCY: OVER 30 MINUTES ON DAY 1.
     Route: 042
     Dates: start: 20101203, end: 20110114

REACTIONS (12)
  - ASPARTATE AMINOTRANSFERASE INCREASED [None]
  - LYMPHOCYTE COUNT DECREASED [None]
  - NEUTROPHIL COUNT DECREASED [None]
  - CONFUSIONAL STATE [None]
  - EMBOLISM ARTERIAL [None]
  - SINUS TACHYCARDIA [None]
  - HYPOTENSION [None]
  - HYPOCALCAEMIA [None]
  - WHITE BLOOD CELL COUNT DECREASED [None]
  - LEFT VENTRICULAR DYSFUNCTION [None]
  - PNEUMONITIS [None]
  - HYPONATRAEMIA [None]
